FAERS Safety Report 9527598 (Version 1)
Quarter: 2013Q3

REPORT INFORMATION
  Report Type: Spontaneous
  Country: US (occurrence: None)
  Receive Date: 20130913
  Receipt Date: 20130913
  Transmission Date: 20140515
  Serious: Yes (Other)
  Sender: FDA-Public Use
  Company Number: None

PATIENT
  Age: 70 Year
  Sex: Male
  Weight: 83.92 kg

DRUGS (11)
  1. CIALIS 5MG I GUESS LILLY CO [Suspect]
     Indication: BENIGN PROSTATIC HYPERPLASIA
     Route: 048
     Dates: start: 20130620, end: 20130827
  2. COZAAR [Concomitant]
  3. VITC [Concomitant]
  4. VITD [Concomitant]
  5. ASPIRIN [Concomitant]
  6. RAW PALLEMTO [Concomitant]
  7. QULCOSTIME+CONDRUDONE [Concomitant]
  8. MULTI VIT [Concomitant]
  9. FISH OIL [Concomitant]
  10. PRILOSEC [Concomitant]
  11. CQ10 [Concomitant]

REACTIONS (1)
  - Sudden hearing loss [None]
